FAERS Safety Report 18517909 (Version 1)
Quarter: 2020Q4

REPORT INFORMATION
  Report Type: Report from Study
  Country: US (occurrence: US)
  Receive Date: 20201118
  Receipt Date: 20201118
  Transmission Date: 20210114
  Serious: Yes (Death)
  Sender: FDA-Public Use
  Company Number: US-JNJFOC-20201130259

PATIENT

DRUGS (1)
  1. TRABECTEDIN [Suspect]
     Active Substance: TRABECTEDIN
     Indication: NEOPLASM
     Route: 042

REACTIONS (1)
  - Death [Fatal]
